FAERS Safety Report 12167234 (Version 5)
Quarter: 2018Q3

REPORT INFORMATION
  Report Type: Report from Study
  Country: JP (occurrence: JP)
  Receive Date: 20160310
  Receipt Date: 20180801
  Transmission Date: 20181010
  Serious: Yes (Hospitalization, Other)
  Sender: FDA-Public Use
  Company Number: JP-AMGEN-JPNNI2016028621

PATIENT
  Age: 69 Year
  Sex: Male

DRUGS (4)
  1. DARBEPOETIN ALFA [Suspect]
     Active Substance: DARBEPOETIN ALFA
     Dosage: UNK
     Route: 042
     Dates: start: 20171209
  2. DARBEPOETIN ALFA [Suspect]
     Active Substance: DARBEPOETIN ALFA
     Dosage: UNK
     Route: 042
     Dates: start: 20151212, end: 20171208
  3. DARBEPOETIN ALFA [Suspect]
     Active Substance: DARBEPOETIN ALFA
     Dosage: UNK
     Route: 042
     Dates: start: 20151003, end: 20151211
  4. DARBEPOETIN ALFA [Suspect]
     Active Substance: DARBEPOETIN ALFA
     Indication: PRODUCT USED FOR UNKNOWN INDICATION
     Dosage: UNK
     Route: 042
     Dates: start: 20150905, end: 20151002

REACTIONS (10)
  - Arteriovenous fistula site complication [Recovering/Resolving]
  - Azotaemia [Recovering/Resolving]
  - Arteriovenous fistula site complication [Recovering/Resolving]
  - Cardiac failure congestive [Recovering/Resolving]
  - End stage renal disease [Recovering/Resolving]
  - Arteriovenous fistula site complication [Recovering/Resolving]
  - Arteriovenous fistula site complication [Recovering/Resolving]
  - Arteriovenous fistula site complication [Recovering/Resolving]
  - Arteriovenous fistula site complication [Recovering/Resolving]
  - Arteriovenous fistula site complication [Recovering/Resolving]

NARRATIVE: CASE EVENT DATE: 20151221
